FAERS Safety Report 8872025 (Version 1)
Quarter: 2012Q4

REPORT INFORMATION
  Report Type: 
  Country: US (occurrence: US)
  Receive Date: 20121023
  Receipt Date: 20121023
  Transmission Date: 20130627
  Serious: No
  Sender: FDA-Public Use
  Company Number: US-ASTELLAS-2012US003310

PATIENT
  Sex: Female

DRUGS (3)
  1. PROGRAF [Suspect]
     Indication: LIVER TRANSPLANT
     Dosage: 1 mg, bid
     Route: 048
     Dates: start: 19940705
  2. CELLCEPT [Concomitant]
     Indication: LIVER TRANSPLANT
     Dosage: 2000 mg, UID/QD
     Route: 048
     Dates: start: 2008
  3. PREDNISONE [Concomitant]
     Indication: LIVER TRANSPLANT
     Dosage: 5 mg, UID/QD
     Route: 048
     Dates: start: 19940705

REACTIONS (2)
  - Psoriasis [Not Recovered/Not Resolved]
  - Dermatitis infected [Not Recovered/Not Resolved]
